FAERS Safety Report 7063576-4 (Version None)
Quarter: 2010Q4

REPORT INFORMATION
  Report Type: 
  Country: None (occurrence: None)
  Receive Date: 20101026
  Receipt Date: 20101015
  Transmission Date: 20110411
  Serious: Yes (Disabling)
  Sender: FDA-Public Use
  Company Number: GB-AMGEN LTD.-GBRCT2010000334

PATIENT
  Sex: Male

DRUGS (1)
  1. DENOSUMAB [Suspect]
     Indication: NEOPLASM MALIGNANT
     Dosage: 120 MG, Q4WK
     Dates: start: 20100330, end: 20100907

REACTIONS (1)
  - OSTEONECROSIS OF JAW [None]
